FAERS Safety Report 4387006-6 (Version None)
Quarter: 2004Q2

REPORT INFORMATION
  Report Type: 
  Country: None (occurrence: None)
  Receive Date: 20040630
  Receipt Date: 20040129
  Transmission Date: 20050107
  Serious: Yes (Life-Threatening, Hospitalization)
  Sender: FDA-Public Use
  Company Number: PT-AMGEN-UK065138

PATIENT
  Sex: Male
  Weight: 80 kg

DRUGS (2)
  1. ARANESP [Suspect]
     Indication: DIALYSIS
     Route: 042
     Dates: start: 20010720
  2. IRON DEXTRAN [Concomitant]
     Route: 042
     Dates: start: 20020101

REACTIONS (5)
  - GASTRIC HAEMORRHAGE [None]
  - HEPATIC ENCEPHALOPATHY [None]
  - HEPATIC FAILURE [None]
  - HYPERSPLENISM ACQUIRED [None]
  - PANCYTOPENIA [None]
